FAERS Safety Report 8992229 (Version 7)
Quarter: 2013Q3

REPORT INFORMATION
  Report Type: Spontaneous
  Country: US (occurrence: US)
  Receive Date: 20121231
  Receipt Date: 20130710
  Transmission Date: 20140515
  Serious: Yes (Hospitalization, Other)
  Sender: FDA-Public Use
  Company Number: US-009507513-1204USA01071

PATIENT
  Sex: Female
  Weight: 86.17 kg

DRUGS (6)
  1. FOSAMAX [Suspect]
     Indication: OSTEOPOROSIS
     Dosage: 10 MG, QD
     Route: 048
     Dates: start: 199705, end: 200110
  2. FOSAMAX [Suspect]
     Dosage: 70 MG, QW
     Route: 048
     Dates: start: 200110, end: 200812
  3. ALENDRONATE SODIUM [Suspect]
     Indication: OSTEOPOROSIS
     Dosage: 70 MG, QW
     Route: 048
     Dates: start: 200906, end: 201002
  4. CHONDROITIN SULFATE SODIUM (+) GLUCOSAMINE SULFATE [Concomitant]
     Indication: PRODUCT USED FOR UNKNOWN INDICATION
     Dosage: UNK, BID
     Route: 048
     Dates: start: 1996
  5. CALTRATE (CALCIUM CARBONATE (+) CHOLECALCIFEROL) [Concomitant]
     Indication: PRODUCT USED FOR UNKNOWN INDICATION
     Dosage: 600 MG, BID
     Route: 048
     Dates: start: 1996
  6. SYNTHROID [Concomitant]
     Indication: THYROID DISORDER
     Dosage: UNK
     Dates: start: 1983

REACTIONS (62)
  - Intramedullary rod insertion [Unknown]
  - Intramedullary rod insertion [Unknown]
  - Medical device change [Unknown]
  - Medical device complication [Unknown]
  - Device breakage [Unknown]
  - Wound infection staphylococcal [Recovering/Resolving]
  - Inflammation [Recovering/Resolving]
  - Device related infection [Recovering/Resolving]
  - Hypotension [Unknown]
  - Anaemia [Recovered/Resolved]
  - Cardiac pacemaker insertion [Unknown]
  - Hyponatraemia [Unknown]
  - Urinary tract infection [Unknown]
  - Wound closure [Unknown]
  - Incisional drainage [Unknown]
  - Knee arthroplasty [Unknown]
  - Pyrexia [Unknown]
  - Femur fracture [Unknown]
  - Femur fracture [Unknown]
  - Femur fracture [Unknown]
  - Dental implantation [Unknown]
  - Tooth extraction [Unknown]
  - Essential hypertension [Not Recovered/Not Resolved]
  - Blood cholesterol increased [Unknown]
  - Cardiac ablation [Unknown]
  - Atrial fibrillation [Unknown]
  - Incorrect dose administered [Unknown]
  - Nephrolithiasis [Unknown]
  - Upper gastrointestinal haemorrhage [Unknown]
  - Peptic ulcer [Unknown]
  - Transient ischaemic attack [Unknown]
  - Chronic obstructive pulmonary disease [Unknown]
  - Sinusitis [Unknown]
  - Coronary artery disease [Unknown]
  - Sjogren^s syndrome [Unknown]
  - Oedema [Recovering/Resolving]
  - Atrial flutter [Unknown]
  - Hyperlipidaemia [Unknown]
  - Skin disorder [Unknown]
  - Enthesopathy [Unknown]
  - Neoplasm [Unknown]
  - Vertebral foraminal stenosis [Unknown]
  - Tachycardia [Unknown]
  - Ligament sprain [Unknown]
  - Lumbar spinal stenosis [Unknown]
  - Wound dehiscence [Unknown]
  - Plantar fasciitis [Unknown]
  - Osteopenia [Unknown]
  - Cardiac ablation [Unknown]
  - Intervertebral disc degeneration [Unknown]
  - Hypothyroidism [Unknown]
  - Red blood cell sedimentation rate decreased [Unknown]
  - Arrhythmia [Unknown]
  - C-reactive protein increased [Unknown]
  - Adverse drug reaction [Unknown]
  - Benign bone neoplasm [Unknown]
  - Osteoarthritis [Unknown]
  - Vertigo [Unknown]
  - Pain in extremity [Unknown]
  - Pain in extremity [Not Recovered/Not Resolved]
  - Arthralgia [Unknown]
  - Constipation [Unknown]
